FAERS Safety Report 20602686 (Version 1)
Quarter: 2022Q1

REPORT INFORMATION
  Report Type: Spontaneous
  Country: CN (occurrence: CN)
  Receive Date: 20220316
  Receipt Date: 20220316
  Transmission Date: 20220423
  Serious: Yes (Hospitalization, Disabling, Other)
  Sender: FDA-Public Use
  Company Number: CN-009507513-2203CHN003944

PATIENT
  Age: 57 Year
  Sex: Male
  Weight: 60 kg

DRUGS (12)
  1. KEYTRUDA [Suspect]
     Active Substance: PEMBROLIZUMAB
     Indication: Lung squamous cell carcinoma stage IV
     Dosage: 200 MG, EVERY 21 DAYS (Q3W)
     Route: 041
     Dates: start: 20211023, end: 20211023
  2. KEYTRUDA [Suspect]
     Active Substance: PEMBROLIZUMAB
     Dosage: 200 MG, EVERY 21 DAYS (Q3W)
     Route: 041
     Dates: start: 20211114, end: 20211114
  3. KEYTRUDA [Suspect]
     Active Substance: PEMBROLIZUMAB
     Dosage: 200 MG, EVERY 21 DAYS (Q3W)
     Route: 041
     Dates: start: 20211210, end: 20211210
  4. KEYTRUDA [Suspect]
     Active Substance: PEMBROLIZUMAB
     Dosage: 200 MG, EVERY 21 DAYS (Q3W)
     Route: 041
     Dates: start: 20211231, end: 20211231
  5. PACLITAXEL [Suspect]
     Active Substance: PACLITAXEL
     Dosage: 0.4 G
     Route: 041
     Dates: start: 20211023, end: 20211023
  6. PACLITAXEL [Suspect]
     Active Substance: PACLITAXEL
     Dosage: 0.4 G
     Route: 041
     Dates: start: 20211114, end: 20211114
  7. PACLITAXEL [Suspect]
     Active Substance: PACLITAXEL
     Dosage: 0.4 G
     Route: 041
     Dates: start: 20211210, end: 20211210
  8. PACLITAXEL [Suspect]
     Active Substance: PACLITAXEL
     Dosage: 0.4 G
     Route: 041
     Dates: start: 20211231, end: 20211231
  9. CARBOPLATIN [Suspect]
     Active Substance: CARBOPLATIN
     Dosage: 0.5 G
     Route: 041
     Dates: start: 20211023, end: 20211023
  10. CARBOPLATIN [Suspect]
     Active Substance: CARBOPLATIN
     Dosage: 0.5 G
     Route: 041
     Dates: start: 20211114, end: 20211114
  11. CARBOPLATIN [Suspect]
     Active Substance: CARBOPLATIN
     Dosage: 0.5 G
     Route: 041
     Dates: start: 20211210, end: 20211210
  12. CARBOPLATIN [Suspect]
     Active Substance: CARBOPLATIN
     Dosage: 0.5 G
     Route: 041
     Dates: start: 20211231, end: 20211231

REACTIONS (5)
  - Blindness unilateral [Not Recovered/Not Resolved]
  - Visual acuity reduced [Recovering/Resolving]
  - Condition aggravated [Unknown]
  - Inappropriate schedule of product administration [Unknown]
  - Inappropriate schedule of product administration [Unknown]

NARRATIVE: CASE EVENT DATE: 20211114
